FAERS Safety Report 16676178 (Version 3)
Quarter: 2019Q4

REPORT INFORMATION
  Report Type: Report from Study
  Country: US (occurrence: US)
  Receive Date: 20190807
  Receipt Date: 20191004
  Transmission Date: 20200122
  Serious: Yes (Hospitalization)
  Sender: FDA-Public Use
  Company Number: US-JAZZ-2019-US-010722

PATIENT
  Age: 63 Year
  Sex: Male

DRUGS (1)
  1. FAZACLO [Suspect]
     Active Substance: CLOZAPINE
     Indication: PRODUCT USED FOR UNKNOWN INDICATION
     Dosage: MG, QD
     Route: 048
     Dates: start: 20120516

REACTIONS (1)
  - Benign neoplasm [Recovered/Resolved]

NARRATIVE: CASE EVENT DATE: 20190626
